FAERS Safety Report 4674126-1 (Version None)
Quarter: 2005Q2

REPORT INFORMATION
  Report Type: 
  Country: None (occurrence: None)
  Receive Date: 20050524
  Receipt Date: 20050518
  Transmission Date: 20051028
  Serious: Yes (Death, Hospitalization)
  Sender: FDA-Public Use
  Company Number: 200505IM000192

PATIENT
  Age: 59 Year
  Sex: Male

DRUGS (1)
  1. ACTIMMUNE [Suspect]
     Indication: IDIOPATHIC PULMONARY FIBROSIS
     Dosage: 200 UG, TIW, SUBCUTANEOUS
     Route: 058
     Dates: start: 20020318, end: 20050411

REACTIONS (1)
  - CARDIO-RESPIRATORY ARREST [None]
